FAERS Safety Report 17914986 (Version 1)
Quarter: 2020Q2

REPORT INFORMATION
  Report Type: Report from Study
  Country: CA (occurrence: CA)
  Receive Date: 20200618
  Receipt Date: 20200618
  Transmission Date: 20200714
  Serious: Yes (Other)
  Sender: FDA-Public Use
  Company Number: CA-AMGEN-CANSL2018033728

PATIENT
  Age: 68 Year
  Sex: Female
  Weight: 47.17 kg

DRUGS (1)
  1. PROLIA [Suspect]
     Active Substance: DENOSUMAB
     Indication: PRODUCT USED FOR UNKNOWN INDICATION
     Dosage: 60 MILLIGRAM PER MILLILITRE, Q6MO
     Route: 065
     Dates: start: 20131109

REACTIONS (6)
  - Tooth loss [Unknown]
  - Dental necrosis [Unknown]
  - Artificial crown procedure [Unknown]
  - Jaw disorder [Unknown]
  - Gingivitis [Unknown]
  - Loose tooth [Unknown]

NARRATIVE: CASE EVENT DATE: 201909
